FAERS Safety Report 4557105-4 (Version None)
Quarter: 2005Q1

REPORT INFORMATION
  Report Type: 
  Country: None (occurrence: None)
  Receive Date: 20050118
  Receipt Date: 20050104
  Transmission Date: 20050727
  Serious: Yes (Hospitalization)
  Sender: FDA-Public Use
  Company Number: 2005GB00042

PATIENT
  Age: 61 Year

DRUGS (1)
  1. NOLVADEX [Suspect]
     Dates: start: 20030329

REACTIONS (2)
  - IMPAIRED HEALING [None]
  - LATISSIMUS DORSI FLAP [None]
